FAERS Safety Report 8616459 (Version 2)
Quarter: 2013Q2

REPORT INFORMATION
  Report Type: Spontaneous
  Country: US (occurrence: US)
  Receive Date: 20120615
  Receipt Date: 20130624
  Transmission Date: 20140414
  Serious: No
  Sender: FDA-Public Use
  Company Number: US-ASTRAZENECA-2012SE36179

PATIENT
  Age: 50 Year
  Sex: Female

DRUGS (22)
  1. NEXIUM [Suspect]
     Indication: DYSPEPSIA
     Route: 048
     Dates: start: 2008, end: 2011
  2. NEXIUM [Suspect]
     Indication: GASTROOESOPHAGEAL REFLUX DISEASE
     Route: 048
     Dates: start: 2008, end: 2011
  3. OMEPRAZOLE [Suspect]
     Indication: GASTROOESOPHAGEAL REFLUX DISEASE
     Route: 048
     Dates: start: 20120405
  4. CRESTOR [Concomitant]
     Indication: BLOOD CHOLESTEROL INCREASED
     Dates: start: 20120313
  5. KOMBIGLYZE [Concomitant]
     Dosage: 5-500MG
     Dates: start: 20120118
  6. EXFORGE [Concomitant]
     Indication: HYPERTENSION
  7. LYRICA [Concomitant]
     Indication: NERVOUS SYSTEM DISORDER
  8. FRUSEMIDE [Concomitant]
     Dates: start: 20120417
  9. CELEBREX [Concomitant]
     Indication: OSTEOARTHRITIS
     Dates: start: 20120625
  10. TIZANIDINE [Concomitant]
     Indication: MUSCLE RELAXANT THERAPY
  11. VICODIN [Concomitant]
     Dosage: 5-500MG EVERY 6 HRS AS NEEDED
     Route: 048
     Dates: start: 20120814
  12. AMITIZA [Concomitant]
     Dates: start: 20120118
  13. BUPROPION SR [Concomitant]
     Dates: start: 20120118
  14. CARISOPRODOL [Concomitant]
     Dates: start: 20120108
  15. CEFDINIR [Concomitant]
     Dates: start: 20120625
  16. CYMBALTA [Concomitant]
     Dates: start: 20120108
  17. EXFORGE HCT [Concomitant]
     Dosage: 5-160-12.5MG
     Dates: start: 20120108
  18. GABAPENTIN [Concomitant]
     Dates: start: 20120313
  19. METHOCARBAMOL [Concomitant]
     Dates: start: 20120625
  20. NAPROXEN [Concomitant]
     Dates: start: 20120118
  21. SINGULAIR [Concomitant]
     Indication: MULTIPLE ALLERGIES
     Dates: start: 20120118
  22. SEROQUEL XR [Concomitant]
     Dates: start: 20120202

REACTIONS (14)
  - Osteoporosis [Unknown]
  - Multiple fractures [Unknown]
  - Lower limb fracture [Unknown]
  - Carpal tunnel syndrome [Unknown]
  - Bone loss [Unknown]
  - Musculoskeletal disorder [Unknown]
  - Arthritis [Unknown]
  - Bone pain [Unknown]
  - Diabetes mellitus [Unknown]
  - Rheumatoid arthritis [Unknown]
  - Osteoarthritis [Unknown]
  - Onychomycosis [Unknown]
  - Tibia fracture [Unknown]
  - Depression [Unknown]
